FAERS Safety Report 4377443-8 (Version None)
Quarter: 2004Q2

REPORT INFORMATION
  Report Type: 
  Country: None (occurrence: None)
  Receive Date: 20040609
  Receipt Date: 20031021
  Transmission Date: 20050107
  Serious: Yes (Hospitalization)
  Sender: FDA-Public Use
  Company Number: RENA-10600

PATIENT
  Age: 58 Year
  Sex: Male
  Weight: 60 kg

DRUGS (7)
  1. RENAGEL [Suspect]
     Indication: HYPERPHOSPHATAEMIA
     Dosage: 0.8 G BID PO
     Route: 048
     Dates: start: 20030327, end: 20030328
  2. RENAGEL [Suspect]
     Indication: HYPERPHOSPHATAEMIA
     Dosage: 0.8 G QD PO
     Route: 048
     Dates: start: 20031016, end: 20031016
  3. ESIDRIX [Concomitant]
  4. ATENOLOL [Concomitant]
  5. TAREG [Concomitant]
  6. NEORECORMON [Concomitant]
  7. BURINEX [Concomitant]

REACTIONS (11)
  - BURSITIS [None]
  - CONDITION AGGRAVATED [None]
  - HAEMOGLOBIN DECREASED [None]
  - HYDROCHOLECYSTIS [None]
  - HYPERSENSITIVITY [None]
  - NAUSEA [None]
  - NEPHROLITHIASIS [None]
  - POLYNEUROPATHY [None]
  - PYREXIA [None]
  - RENAL FAILURE [None]
  - SKIN NODULE [None]
